FAERS Safety Report 23784303 (Version 1)
Quarter: 2024Q2

REPORT INFORMATION
  Report Type: Spontaneous
  Country: US (occurrence: US)
  Receive Date: 20240425
  Receipt Date: 20240425
  Transmission Date: 20240716
  Serious: No
  Sender: FDA-Public Use
  Company Number: US-Kiniksa Pharmaceuticals Ltd.-2023KPU001110

PATIENT
  Age: 62 Year
  Sex: Male

DRUGS (1)
  1. ARCALYST [Suspect]
     Active Substance: RILONACEPT
     Indication: Pericarditis
     Route: 058

REACTIONS (3)
  - Inappropriate schedule of product administration [Unknown]
  - Product solubility abnormal [Unknown]
  - Product container issue [Unknown]

NARRATIVE: CASE EVENT DATE: 20231124
